FAERS Safety Report 21579786 (Version 1)
Quarter: 2022Q4

REPORT INFORMATION
  Report Type: Spontaneous
  Country: US (occurrence: None)
  Receive Date: 20221109
  Receipt Date: 20221109
  Transmission Date: 20230112
  Serious: Yes (Other)
  Sender: FDA-Public Use
  Company Number: None

PATIENT
  Sex: Female

DRUGS (8)
  1. DIMETHYL FUMARATE [Suspect]
     Active Substance: DIMETHYL FUMARATE
     Indication: Multiple sclerosis
     Dosage: FREQUENCY : TWICE A DAY;?
     Route: 048
     Dates: start: 20220419
  2. GABAPENTIN POW [Concomitant]
  3. GABAPENTIN TAB [Concomitant]
  4. IBUPROFEN TAB [Concomitant]
  5. KEPPRA TAB [Concomitant]
  6. SWIM EAR LIQ OTIC [Concomitant]
  7. TECFIDERA [Concomitant]
     Active Substance: DIMETHYL FUMARATE
  8. VITAMIN D CAP [Concomitant]

REACTIONS (3)
  - Seizure [None]
  - Depression [None]
  - Fatigue [None]
